FAERS Safety Report 9107297 (Version 4)
Quarter: 2013Q3

REPORT INFORMATION
  Report Type: Spontaneous
  Country: US (occurrence: US)
  Receive Date: 20130221
  Receipt Date: 20130904
  Transmission Date: 20140515
  Serious: Yes (Hospitalization, Other)
  Sender: FDA-Public Use
  Company Number: US-MERCK-1302USA009349

PATIENT
  Sex: Female

DRUGS (5)
  1. FOSAMAX [Suspect]
     Indication: OSTEOPOROSIS
     Dosage: 5 MG, UNK
     Route: 048
     Dates: start: 199903, end: 201009
  2. FOSAMAX [Suspect]
     Dosage: 10 MG, UNK
     Route: 048
     Dates: start: 199903, end: 201009
  3. FOSAMAX [Suspect]
     Dosage: 40 MG, UNK
     Route: 048
     Dates: start: 199903, end: 201009
  4. FOSAMAX [Suspect]
     Dosage: 35 MG, UNK
     Route: 048
     Dates: end: 201009
  5. FOSAMAX [Suspect]
     Dosage: 70 MG, UNK
     Route: 048
     Dates: end: 201009

REACTIONS (35)
  - Femur fracture [Unknown]
  - Intramedullary rod insertion [Unknown]
  - Femur fracture [Unknown]
  - Intramedullary rod insertion [Unknown]
  - Squamous cell carcinoma of skin [Unknown]
  - Cancer surgery [Unknown]
  - Fall [Unknown]
  - Blood potassium decreased [Recovering/Resolving]
  - Haemoglobin decreased [Unknown]
  - Haematocrit decreased [Unknown]
  - Tooth extraction [Unknown]
  - Dental implantation [Unknown]
  - Osteoarthritis [Unknown]
  - Foot operation [Unknown]
  - Depression [Unknown]
  - Irritable bowel syndrome [Unknown]
  - Medical device complication [Unknown]
  - Medical device removal [Unknown]
  - Osteoporosis [Not Recovered/Not Resolved]
  - Spinal osteoarthritis [Unknown]
  - Osteoarthritis [Unknown]
  - Neurectomy [Unknown]
  - Hypothyroidism [Unknown]
  - Paraesthesia [Unknown]
  - Scoliosis [Unknown]
  - Joint crepitation [Unknown]
  - Joint hyperextension [Unknown]
  - Joint crepitation [Unknown]
  - Joint crepitation [Unknown]
  - Bone cyst [Unknown]
  - Crepitations [Unknown]
  - Joint dislocation [Unknown]
  - Osteopenia [Unknown]
  - Compression fracture [Unknown]
  - Arthralgia [Unknown]
